FAERS Safety Report 6642674-0 (Version None)
Quarter: 2010Q1

REPORT INFORMATION
  Report Type: 
  Country: None (occurrence: None)
  Receive Date: 20100319
  Receipt Date: 20100309
  Transmission Date: 20100710
  Serious: Yes (Other)
  Sender: FDA-Public Use
  Company Number: DE-GENENTECH-299374

PATIENT
  Sex: Male

DRUGS (1)
  1. XOLAIR [Suspect]
     Indication: URTICARIA CHRONIC
     Dosage: 150 MG, 1/MONTH
     Route: 058
     Dates: start: 20080101

REACTIONS (1)
  - OSTEITIS [None]
